FAERS Safety Report 5397951-0 (Version None)
Quarter: 2007Q3

REPORT INFORMATION
  Report Type: 
  Country: None (occurrence: None)
  Receive Date: 20070726
  Receipt Date: 20070718
  Transmission Date: 20080115
  Serious: Yes (Other)
  Sender: FDA-Public Use
  Company Number: JP-JNJFOC-20070702024

PATIENT
  Sex: Male
  Weight: 55 kg

DRUGS (9)
  1. RISPERDAL [Suspect]
     Indication: DELUSION
     Route: 048
  2. RISPERDAL [Suspect]
     Indication: HALLUCINATION
     Route: 048
  3. BIPERIDEN HYDROCHLORIDE TAB [Concomitant]
     Indication: PROPHYLAXIS
     Route: 048
  4. EVAMYL [Concomitant]
     Route: 048
  5. EVAMYL [Concomitant]
     Route: 048
  6. EVAMYL [Concomitant]
     Route: 048
  7. EVAMYL [Concomitant]
     Indication: INSOMNIA
     Route: 048
  8. NITRAZEPAM [Concomitant]
     Route: 048
  9. PURSENNID [Concomitant]
     Indication: CONSTIPATION
     Route: 048

REACTIONS (1)
  - PANCYTOPENIA [None]
